FAERS Safety Report 6020757-6 (Version None)
Quarter: 2008Q4

REPORT INFORMATION
  Report Type: 
  Country: None (occurrence: None)
  Receive Date: 20081229
  Receipt Date: 20081224
  Transmission Date: 20090506
  Serious: Yes (Death)
  Sender: FDA-Public Use
  Company Number: PHHY2008JP12898

PATIENT
  Sex: Female
  Weight: 33 kg

DRUGS (3)
  1. EXJADE [Suspect]
     Indication: IRON OVERLOAD
     Dosage: 500 MG/DAY
     Route: 048
     Dates: start: 20080620
  2. CLARITHROMYCIN [Concomitant]
     Dosage: 400 MG/DAY
     Route: 048
     Dates: start: 20050707
  3. DASEN [Concomitant]
     Dosage: 20 MG/DAY
     Route: 048
     Dates: start: 20050707

REACTIONS (2)
  - DISEASE PROGRESSION [None]
  - HAEMOCHROMATOSIS [None]
